FAERS Safety Report 5657229-4 (Version None)
Quarter: 2008Q1

REPORT INFORMATION
  Report Type: 
  Country: None (occurrence: None)
  Receive Date: 20080310
  Receipt Date: 20080229
  Transmission Date: 20080703
  Serious: Yes (Other)
  Sender: FDA-Public Use
  Company Number: NC-ASTRAZENECA-2008CG00342

PATIENT
  Age: 34 Year
  Sex: Female

DRUGS (4)
  1. RHINOCORT [Suspect]
     Indication: SINUS POLYP
     Route: 045
     Dates: start: 20030101
  2. RHINOCORT [Suspect]
     Route: 045
  3. VIRLIX [Concomitant]
     Route: 048
  4. VENTOLIN [Concomitant]

REACTIONS (1)
  - ADRENAL INSUFFICIENCY [None]
